FAERS Safety Report 22652673 (Version 1)
Quarter: 2023Q2

REPORT INFORMATION
  Report Type: Spontaneous
  Country: AU (occurrence: AU)
  Receive Date: 20230629
  Receipt Date: 20230629
  Transmission Date: 20230721
  Serious: Yes (Other)
  Sender: FDA-Public Use
  Company Number: AU-JNJFOC-20230663107

PATIENT
  Age: 30 Year
  Sex: Male

DRUGS (4)
  1. OPSUMIT [Suspect]
     Active Substance: MACITENTAN
     Indication: Pulmonary arterial hypertension
     Route: 048
  2. UPTRAVI [Suspect]
     Active Substance: SELEXIPAG
     Indication: Pulmonary arterial hypertension
     Route: 048
  3. TADALAFIL [Concomitant]
     Active Substance: TADALAFIL
  4. APIXABAN [Concomitant]
     Active Substance: APIXABAN
     Dates: start: 202306

REACTIONS (3)
  - Pulmonary hypertension [Unknown]
  - COVID-19 [Unknown]
  - Dyspnoea exertional [Unknown]
